FAERS Safety Report 21062093 (Version 2)
Quarter: 2022Q3

REPORT INFORMATION
  Report Type: Spontaneous
  Country: CA (occurrence: CA)
  Receive Date: 20220710
  Receipt Date: 20220813
  Transmission Date: 20221027
  Serious: Yes (Other)
  Sender: FDA-Public Use
  Company Number: CA-JNJFOC-20220710814

PATIENT
  Age: 33 Year
  Sex: Male

DRUGS (2)
  1. REMICADE [Suspect]
     Active Substance: INFLIXIMAB
     Indication: Crohn^s disease
     Route: 041
  2. COMIRNATY [Suspect]
     Active Substance: TOZINAMERAN
     Indication: COVID-19 immunisation
     Dosage: VIAL CONTAINS 6 DOSES OF 0.3 ML AFTER DILUTION
     Route: 030

REACTIONS (2)
  - COVID-19 [Unknown]
  - Drug ineffective [Unknown]
